FAERS Safety Report 26145178 (Version 2)
Quarter: 2025Q4

REPORT INFORMATION
  Report Type: Spontaneous
  Country: US (occurrence: US)
  Receive Date: 20251211
  Receipt Date: 20251211
  Transmission Date: 20260118
  Serious: Yes (Other)
  Sender: IPSEN BIOPHARMACEUTICALS, INC.
  Company Number: US-IPSEN Group, Research and Development-2025-30233

PATIENT

DRUGS (1)
  1. TAZEMETOSTAT [Suspect]
     Active Substance: TAZEMETOSTAT
     Indication: Follicular lymphoma refractory

REACTIONS (2)
  - Ascites [Unknown]
  - Effusion [Unknown]
